FAERS Safety Report 16894580 (Version 2)
Quarter: 2019Q4

REPORT INFORMATION
  Report Type: Spontaneous
  Country: JP (occurrence: JP)
  Receive Date: 20191008
  Receipt Date: 20191011
  Transmission Date: 20200122
  Serious: Yes (Other)
  Sender: FDA-Public Use
  Company Number: JP-PFIZER INC-2019422295

PATIENT
  Age: 61 Year
  Sex: Female

DRUGS (4)
  1. FLUOROURACIL. [Suspect]
     Active Substance: FLUOROURACIL
     Indication: COLORECTAL CANCER METASTATIC
     Dosage: UNK, 1 CYCLIC
  2. RAMUCIRUMAB [Suspect]
     Active Substance: RAMUCIRUMAB
     Indication: COLORECTAL CANCER METASTATIC
     Dosage: UNK, 1 CYCLIC
  3. CALCIUM FOLINATE [Suspect]
     Active Substance: LEUCOVORIN CALCIUM
     Indication: COLORECTAL CANCER METASTATIC
     Dosage: UNK, 1 CYCLIC
  4. IRINOTECAN HCL [Suspect]
     Active Substance: IRINOTECAN HYDROCHLORIDE
     Indication: COLORECTAL CANCER METASTATIC
     Dosage: UNK, 1 CYCLIC

REACTIONS (6)
  - Nausea [Unknown]
  - Fatigue [Unknown]
  - Alopecia [Unknown]
  - Vomiting [Unknown]
  - Neutrophil count decreased [Unknown]
  - Abdominal pain [Unknown]
